FAERS Safety Report 11245351 (Version 4)
Quarter: 2016Q1

REPORT INFORMATION
  Report Type: Spontaneous
  Country: US (occurrence: US)
  Receive Date: 20150707
  Receipt Date: 20160225
  Transmission Date: 20160525
  Serious: Yes (Other)
  Sender: FDA-Public Use
  Company Number: US-BAYER-2015-372707

PATIENT
  Age: 27 Year
  Sex: Female

DRUGS (1)
  1. MIRENA [Suspect]
     Active Substance: LEVONORGESTREL
     Indication: CONTRACEPTION
     Dosage: 20 MCG/24HR, CONT
     Route: 015
     Dates: start: 20131219

REACTIONS (5)
  - Device expulsion [None]
  - Menstruation delayed [None]
  - Pregnancy with contraceptive device [None]
  - Device difficult to use [None]
  - Drug ineffective [None]

NARRATIVE: CASE EVENT DATE: 201505
